FAERS Safety Report 10061827 (Version 1)
Quarter: 2014Q2

REPORT INFORMATION
  Report Type: Spontaneous
  Country: US (occurrence: US)
  Receive Date: 20140407
  Receipt Date: 20140407
  Transmission Date: 20141212
  Serious: No
  Sender: FDA-Public Use
  Company Number: US-BIOGENIDEC-2014BI030899

PATIENT
  Age: 70 Year
  Sex: Male

DRUGS (2)
  1. TYSABRI [Suspect]
     Indication: MULTIPLE SCLEROSIS
     Route: 042
     Dates: start: 20131205
  2. AVONEX [Concomitant]
     Indication: MULTIPLE SCLEROSIS
     Route: 030
     Dates: start: 20020109

REACTIONS (4)
  - Dysphonia [Not Recovered/Not Resolved]
  - Ear pain [Recovered/Resolved]
  - VIIth nerve paralysis [Recovered/Resolved]
  - Herpes zoster [Recovered/Resolved]
